FAERS Safety Report 10255038 (Version 1)
Quarter: 2014Q2

REPORT INFORMATION
  Report Type: Spontaneous
  Country: US (occurrence: US)
  Receive Date: 20140624
  Receipt Date: 20140624
  Transmission Date: 20141212
  Serious: No
  Sender: FDA-Public Use
  Company Number: US-MYLANLABS-2014S1002984

PATIENT
  Sex: Male

DRUGS (1)
  1. PRAVASTATIN [Suspect]

REACTIONS (1)
  - Muscle spasms [Not Recovered/Not Resolved]
